FAERS Safety Report 11837759 (Version 1)
Quarter: 2015Q4

REPORT INFORMATION
  Report Type: Spontaneous
  Country: US (occurrence: US)
  Receive Date: 20151215
  Receipt Date: 20151215
  Transmission Date: 20160305
  Serious: Yes (Death, Hospitalization)
  Sender: FDA-Public Use
  Company Number: US-BAYER-2015-483848

PATIENT
  Age: 59 Year
  Sex: Female

DRUGS (1)
  1. STIVARGA [Suspect]
     Active Substance: REGORAFENIB
     Indication: COLON CANCER
     Dosage: UNK
     Dates: end: 201507

REACTIONS (7)
  - Obstruction [None]
  - Blood electrolytes decreased [None]
  - Anaemia [None]
  - Death [Fatal]
  - Blood magnesium decreased [None]
  - Obstruction [Recovered/Resolved]
  - Dehydration [None]

NARRATIVE: CASE EVENT DATE: 2015
